FAERS Safety Report 9895895 (Version 1)
Quarter: 2014Q1

REPORT INFORMATION
  Report Type: Spontaneous
  Country: US (occurrence: US)
  Receive Date: 20140213
  Receipt Date: 20140213
  Transmission Date: 20141002
  Serious: No
  Sender: FDA-Public Use
  Company Number: US-BRISTOL-MYERS SQUIBB COMPANY-17302167

PATIENT
  Age: 62 Year
  Sex: Female
  Weight: 96.14 kg

DRUGS (18)
  1. ORENCIA [Suspect]
     Indication: RHEUMATOID ARTHRITIS
     Route: 058
  2. PLAQUENIL [Concomitant]
  3. PREDNISONE [Concomitant]
  4. SALSALATE [Concomitant]
  5. VITAMIN D3 [Concomitant]
  6. VITAMIN E [Concomitant]
  7. OMEPRAZOLE [Concomitant]
  8. METANX [Concomitant]
  9. MAGNESIUM [Concomitant]
  10. LEFLUNOMIDE [Concomitant]
  11. LISINOPRIL [Concomitant]
  12. CRANBERRY [Concomitant]
  13. CALCIUM [Concomitant]
  14. CHROMIUM [Concomitant]
  15. COREG [Concomitant]
  16. AMLODIPINE [Concomitant]
  17. FOLIC ACID [Concomitant]
  18. ASMANEX [Concomitant]

REACTIONS (2)
  - Influenza like illness [Unknown]
  - Bacterial infection [Unknown]
